FAERS Safety Report 4296426-X (Version None)
Quarter: 2004Q1

REPORT INFORMATION
  Report Type: 
  Country: None (occurrence: None)
  Receive Date: 20040115
  Receipt Date: 20031204
  Transmission Date: 20041129
  Serious: No
  Sender: FDA-Public Use
  Company Number: 200310443BBE

PATIENT
  Age: 59 Year
  Sex: Male
  Weight: 108.4097 kg

DRUGS (8)
  1. GAMIMUNE N 10% [Suspect]
     Indication: DEMYELINATING POLYNEUROPATHY
     Dosage: 45 G, Q1MON,
     Route: 042
     Dates: start: 20030801
  2. GAMIMUNE N 10% [Suspect]
     Indication: DEMYELINATING POLYNEUROPATHY
     Dosage: 45 G, Q1MON,
     Route: 042
     Dates: start: 20030801
  3. LANOXIN [Concomitant]
  4. LORAZEPAM [Concomitant]
  5. NEURONTIN [Concomitant]
  6. VICODIN [Concomitant]
  7. ZOLOFT [Concomitant]
  8. VITAMINS NOS [Concomitant]

REACTIONS (2)
  - HEADACHE [None]
  - NIGHT SWEATS [None]
